FAERS Safety Report 20677784 (Version 2)
Quarter: 2022Q2

REPORT INFORMATION
  Report Type: Report from Study
  Country: CO (occurrence: CO)
  Receive Date: 20220406
  Receipt Date: 20220407
  Transmission Date: 20220721
  Serious: Yes (Other)
  Sender: FDA-Public Use
  Company Number: CO-BAYER-2022A047867

PATIENT
  Age: 62 Year
  Sex: Male

DRUGS (1)
  1. EYLEA [Suspect]
     Active Substance: AFLIBERCEPT
     Indication: Diabetic retinal oedema
     Dosage: 2MG VL 1X2ML
     Dates: start: 20210203, end: 20211117

REACTIONS (2)
  - Blindness unilateral [Unknown]
  - Intraocular pressure increased [Unknown]
